FAERS Safety Report 17057741 (Version 1)
Quarter: 2019Q4

REPORT INFORMATION
  Report Type: Report from Study
  Country: None (occurrence: AU)
  Receive Date: 20191121
  Receipt Date: 20191121
  Transmission Date: 20200122
  Serious: Yes (Hospitalization, Other)
  Sender: FDA-Public Use
  Company Number: AU-ABBVIE-19K-008-2907089-00

PATIENT
  Age: 24 Year
  Sex: Male

DRUGS (2)
  1. HUMIRA [Suspect]
     Active Substance: ADALIMUMAB
     Route: 058
     Dates: start: 201907
  2. HUMIRA [Suspect]
     Active Substance: ADALIMUMAB
     Indication: CROHN^S DISEASE
     Route: 058
     Dates: start: 20190406, end: 2019

REACTIONS (10)
  - Diarrhoea [Not Recovered/Not Resolved]
  - Proctalgia [Unknown]
  - Pain [Unknown]
  - Hospitalisation [Recovered/Resolved]
  - Depressed mood [Unknown]
  - Crohn^s disease [Unknown]
  - Drug ineffective [Unknown]
  - Pain [Unknown]
  - Fistula [Not Recovered/Not Resolved]
  - Poor quality sleep [Unknown]

NARRATIVE: CASE EVENT DATE: 2019
